FAERS Safety Report 8029240-X (Version None)
Quarter: 2012Q1

REPORT INFORMATION
  Report Type: 
  Country: None (occurrence: None)
  Receive Date: 20120106
  Receipt Date: 20120105
  Transmission Date: 20120608
  Serious: Yes (Other)
  Sender: FDA-Public Use
  Company Number: PHHY2012NL000884

PATIENT
  Sex: Female

DRUGS (3)
  1. ZOMETA [Suspect]
     Dosage: 4 MG/5ML, 1X PER 28 DAYS
     Route: 042
     Dates: start: 20111025
  2. ZOMETA [Suspect]
     Indication: BREAST CANCER METASTATIC
     Dosage: 4 MG/5ML, 1X PER 28 DAYS
     Route: 042
     Dates: start: 20100914
  3. ZOMETA [Suspect]
     Dosage: 4 MG/5ML, 1X PER 28 DAYS
     Route: 042
     Dates: start: 20111123

REACTIONS (1)
  - TERMINAL STATE [None]
